FAERS Safety Report 5911833-4 (Version None)
Quarter: 2008Q4

REPORT INFORMATION
  Report Type: 
  Country: None (occurrence: None)
  Receive Date: 20081008
  Receipt Date: 20080908
  Transmission Date: 20090506
  Serious: Yes (Life-Threatening, Hospitalization)
  Sender: FDA-Public Use
  Company Number: US-RB-004891-08

PATIENT
  Age: 60 Year
  Sex: Male

DRUGS (6)
  1. AMITRIPTYLINE HCL [Suspect]
  2. DEXTROMETHORPHAN BROMHYDRATE AND GUAIFENESIN [Suspect]
  3. DEXTROMETHORPHAN BROMHYDRATE AND GUAIFENESIN [Suspect]
  4. HYDROMORPHONE HCL [Suspect]
  5. GABAPENTIN [Suspect]
  6. CLONAZEPAM [Suspect]

REACTIONS (3)
  - COMA [None]
  - DRUG INTERACTION [None]
  - SOMNOLENCE [None]
